FAERS Safety Report 12104685 (Version 1)
Quarter: 2016Q1

REPORT INFORMATION
  Report Type: Spontaneous
  Country: AU (occurrence: AU)
  Receive Date: 20160223
  Receipt Date: 20160223
  Transmission Date: 20160526
  Serious: Yes (Hospitalization)
  Sender: FDA-Public Use
  Company Number: AU-ACTAVIS PTY LTD-2016-03970

PATIENT
  Age: 33 Year
  Sex: Female

DRUGS (1)
  1. CLARITHROMYCIN (UNKNOWN) [Suspect]
     Active Substance: CLARITHROMYCIN
     Indication: PRODUCT USED FOR UNKNOWN INDICATION
     Dosage: UNK
     Route: 065

REACTIONS (3)
  - Pseudomonas infection [Recovered/Resolved]
  - Toxic epidermal necrolysis [Recovered/Resolved]
  - Pneumonia [Recovered/Resolved]
